FAERS Safety Report 9437667 (Version 1)
Quarter: 2013Q3

REPORT INFORMATION
  Report Type: Spontaneous
  Country: DK (occurrence: DK)
  Receive Date: 20130802
  Receipt Date: 20130802
  Transmission Date: 20140515
  Serious: Yes (Disabling)
  Sender: FDA-Public Use
  Company Number: PHHY2013DK080431

PATIENT
  Sex: Female
  Weight: 110 kg

DRUGS (1)
  1. GESTONETTE [Suspect]
     Indication: DYSMENORRHOEA
     Dates: end: 20110315

REACTIONS (5)
  - Synovial cyst [Unknown]
  - Restless legs syndrome [Not Recovered/Not Resolved]
  - Thrombosis [Recovered/Resolved with Sequelae]
  - Pain in extremity [Not Recovered/Not Resolved]
  - Local swelling [Recovered/Resolved]
